FAERS Safety Report 13200927 (Version 4)
Quarter: 2017Q2

REPORT INFORMATION
  Report Type: Spontaneous
  Country: JP (occurrence: JP)
  Receive Date: 20170209
  Receipt Date: 20170503
  Transmission Date: 20170830
  Serious: Yes (Hospitalization)
  Sender: FDA-Public Use
  Company Number: PHJP2017JP002226

PATIENT
  Age: 18 Year
  Sex: Male

DRUGS (4)
  1. COLCHICINE. [Suspect]
     Active Substance: COLCHICINE
     Dosage: 0.25 MG, UNK
     Route: 048
     Dates: start: 201704
  2. ILARIS [Suspect]
     Active Substance: CANAKINUMAB
     Indication: FAMILIAL MEDITERRANEAN FEVER
     Dosage: 150 MG, UNK
     Route: 058
     Dates: start: 20170104
  3. COLCHICINE. [Suspect]
     Active Substance: COLCHICINE
     Indication: FAMILIAL MEDITERRANEAN FEVER
     Dosage: 1 MG, QD
     Route: 048
     Dates: end: 201703
  4. ILARIS [Suspect]
     Active Substance: CANAKINUMAB
     Dosage: 300 MG, UNK
     Route: 048
     Dates: start: 20170201

REACTIONS (7)
  - Familial mediterranean fever [Recovering/Resolving]
  - Malaise [Recovered/Resolved]
  - Malaise [Not Recovered/Not Resolved]
  - C-reactive protein increased [Recovered/Resolved]
  - Familial mediterranean fever [Recovered/Resolved]
  - Pyrexia [Recovering/Resolving]
  - Pyrexia [Recovered/Resolved]

NARRATIVE: CASE EVENT DATE: 20170117
